FAERS Safety Report 5020082-6 (Version None)
Quarter: 2006Q2

REPORT INFORMATION
  Report Type: 
  Country: None (occurrence: None)
  Receive Date: 20060607
  Receipt Date: 20060605
  Transmission Date: 20061013
  Serious: Yes (Death, Hospitalization)
  Sender: FDA-Public Use
  Company Number: US-JNJFOC-20060601073

PATIENT
  Age: 53 Year
  Sex: Female

DRUGS (1)
  1. PROPULSID [Suspect]
     Indication: GASTRIC DISORDER

REACTIONS (1)
  - DEATH [None]
